FAERS Safety Report 8402353-6 (Version None)
Quarter: 2012Q2

REPORT INFORMATION
  Report Type: 
  Country: None (occurrence: None)
  Receive Date: 20120601
  Receipt Date: 20110717
  Transmission Date: 20120825
  Serious: No
  Sender: FDA-Public Use
  Company Number: US-NOVEN-11US002804

PATIENT
  Sex: Male
  Weight: 22.222 kg

DRUGS (2)
  1. DAYTRANA [Suspect]
     Dosage: 10 MG, UNK
     Dates: end: 20110713
  2. DAYTRANA [Suspect]
     Indication: ATTENTION DEFICIT/HYPERACTIVITY DISORDER
     Dosage: 15 MG, QD
     Route: 062
     Dates: start: 20110714

REACTIONS (7)
  - OFF LABEL USE [None]
  - DRUG EFFECT DELAYED [None]
  - DRUG INEFFECTIVE [None]
  - EXCESSIVE EYE BLINKING [None]
  - DYSKINESIA [None]
  - WRONG TECHNIQUE IN DRUG USAGE PROCESS [None]
  - INCORRECT DRUG ADMINISTRATION DURATION [None]
